FAERS Safety Report 12363744 (Version 1)
Quarter: 2016Q2

REPORT INFORMATION
  Report Type: Spontaneous
  Country: US (occurrence: US)
  Receive Date: 20160512
  Receipt Date: 20160512
  Transmission Date: 20160815
  Serious: No
  Sender: FDA-Public Use
  Company Number: US-UCBSA-2015026189

PATIENT
  Age: 65 Year
  Sex: Female

DRUGS (1)
  1. CIMZIA [Suspect]
     Active Substance: CERTOLIZUMAB PEGOL
     Indication: RHEUMATOID ARTHRITIS
     Dosage: 400 MG, EV 2 WEEKS(QOW)/ INJECT 2 ML SUBCUTANEOUS EVERY 14 DAYS FOR 3 DOSES THEN EVERY 28 DAYS
     Route: 058

REACTIONS (3)
  - Eyelid exfoliation [Unknown]
  - Eyelid oedema [Unknown]
  - Eyelids pruritus [Unknown]
